FAERS Safety Report 6077176-6 (Version None)
Quarter: 2009Q1

REPORT INFORMATION
  Report Type: 
  Country: None (occurrence: None)
  Receive Date: 20090213
  Receipt Date: 20090204
  Transmission Date: 20090719
  Serious: Yes (Other)
  Sender: FDA-Public Use
  Company Number: US-JNJFOC-20081104536

PATIENT
  Sex: Male
  Weight: 78.93 kg

DRUGS (17)
  1. REMICADE [Suspect]
     Route: 042
  2. REMICADE [Suspect]
     Route: 042
  3. REMICADE [Suspect]
     Route: 042
  4. REMICADE [Suspect]
     Route: 042
  5. REMICADE [Suspect]
     Indication: RHEUMATOID ARTHRITIS
     Route: 042
  6. CLARITIN [Concomitant]
     Indication: PREMEDICATION
     Route: 048
  7. ACETAMINOPHEN [Concomitant]
     Indication: PREMEDICATION
     Route: 048
  8. ZOCOR [Concomitant]
  9. ZETIA [Concomitant]
  10. PREDNISONE [Concomitant]
  11. RESTORIX [Concomitant]
  12. METHOTREXATE [Concomitant]
  13. FOLATE [Concomitant]
  14. ZYRTEC [Concomitant]
  15. AMBIEN [Concomitant]
  16. FLEXERIL [Concomitant]
  17. FLOMAX [Concomitant]

REACTIONS (1)
  - PROSTATE CANCER [None]
